FAERS Safety Report 25801648 (Version 1)
Quarter: 2025Q3

REPORT INFORMATION
  Report Type: Spontaneous
  Country: CA (occurrence: CA)
  Receive Date: 20250915
  Receipt Date: 20250915
  Transmission Date: 20251021
  Serious: Yes (Congenital Anomaly, Other)
  Sender: ACCORD
  Company Number: None

PATIENT

DRUGS (1)
  1. TACROLIMUS [Suspect]
     Active Substance: TACROLIMUS
     Indication: Product used for unknown indication
     Route: 064

REACTIONS (2)
  - Frontonasal dysplasia [Unknown]
  - Foetal exposure during pregnancy [Unknown]
